FAERS Safety Report 25888244 (Version 3)
Quarter: 2025Q4

REPORT INFORMATION
  Report Type: Report from Study
  Country: EU (occurrence: EU)
  Receive Date: 20251007
  Receipt Date: 20251017
  Transmission Date: 20260118
  Serious: Yes (Hospitalization)
  Sender: ALEXION PHARMACEUTICALS
  Company Number: EU-ASTRAZENECA-202508GLO009999DE

PATIENT
  Age: 74 Year
  Sex: Female
  Weight: 54 kg

DRUGS (4)
  1. DURVALUMAB [Suspect]
     Active Substance: DURVALUMAB
     Indication: Hepatocellular carcinoma
     Dosage: 1500 MILLIGRAM, SINGLE
     Dates: start: 20250709, end: 20250709
  2. DURVALUMAB [Suspect]
     Active Substance: DURVALUMAB
     Dosage: 1500 MILLIGRAM, SINGLE
     Dates: start: 20250819, end: 20250819
  3. DURVALUMAB [Suspect]
     Active Substance: DURVALUMAB
     Dosage: 1500 MILLIGRAM, SINGLE
     Route: 065
     Dates: start: 20250916, end: 20250916
  4. TREMELIMUMAB [Suspect]
     Active Substance: TREMELIMUMAB
     Indication: Hepatocellular carcinoma
     Dosage: 300 MILLIGRAM, SINGLE
     Dates: start: 20250709, end: 20250709

REACTIONS (1)
  - Venous thrombosis [Recovered/Resolved with Sequelae]

NARRATIVE: CASE EVENT DATE: 20251002
